FAERS Safety Report 19782960 (Version 1)
Quarter: 2021Q3

REPORT INFORMATION
  Report Type: Spontaneous
  Country: CN (occurrence: CN)
  Receive Date: 20210902
  Receipt Date: 20210902
  Transmission Date: 20211014
  Serious: Yes (Hospitalization, Other)
  Sender: FDA-Public Use
  Company Number: CN-ORGANON-O2108CHN002437

PATIENT
  Age: 46 Year
  Sex: Female
  Weight: 62 kg

DRUGS (3)
  1. MANNATIDE [Concomitant]
     Indication: DERMATITIS ALLERGIC
     Dosage: 10MG, TID
     Route: 048
     Dates: start: 20210814, end: 20210814
  2. CYPROHEPTADINE HYDROCHLORIDE. [Concomitant]
     Active Substance: CYPROHEPTADINE HYDROCHLORIDE
     Indication: DERMATITIS ALLERGIC
     Dosage: 2MG, TID
     Route: 048
     Dates: start: 20210814, end: 20210814
  3. SINGULAIR [Suspect]
     Active Substance: MONTELUKAST SODIUM
     Indication: DERMATITIS ALLERGIC
     Dosage: 10MG, QD (AT NIGHT)
     Route: 048
     Dates: start: 20210814, end: 20210814

REACTIONS (8)
  - Dysphoria [Not Recovered/Not Resolved]
  - Chest discomfort [Not Recovered/Not Resolved]
  - Anger [Not Recovered/Not Resolved]
  - Product use in unapproved indication [Unknown]
  - Dyspnoea [Not Recovered/Not Resolved]
  - Hallucination [Not Recovered/Not Resolved]
  - Insomnia [Not Recovered/Not Resolved]
  - Hot flush [Not Recovered/Not Resolved]

NARRATIVE: CASE EVENT DATE: 20210814
